FAERS Safety Report 13295925 (Version 2)
Quarter: 2017Q2

REPORT INFORMATION
  Report Type: Spontaneous
  Country: GB (occurrence: GB)
  Receive Date: 20170303
  Receipt Date: 20170407
  Transmission Date: 20170830
  Serious: Yes (Death)
  Sender: FDA-Public Use
  Company Number: GB-INTERNATIONAL MEDICATION SYSTEMS, LIMITED-1063828

PATIENT
  Age: 24 Year
  Sex: Male

DRUGS (3)
  1. METHADONE [Suspect]
     Active Substance: METHADONE HYDROCHLORIDE
  2. MORPHINE SULFATE. [Suspect]
     Active Substance: MORPHINE SULFATE
  3. PREGABALIN. [Suspect]
     Active Substance: PREGABALIN

REACTIONS (3)
  - Toxicity to various agents [Unknown]
  - Pneumonia [Fatal]
  - Intentional product misuse [Fatal]
